FAERS Safety Report 10641370 (Version 3)
Quarter: 2014Q4

REPORT INFORMATION
  Report Type: Report from Study
  Country: BR (occurrence: BR)
  Receive Date: 20141209
  Receipt Date: 20141219
  Transmission Date: 20150529
  Serious: Yes (Hospitalization, Other)
  Sender: FDA-Public Use
  Company Number: PHHY2012BR103125

PATIENT
  Sex: Female
  Weight: 67 kg

DRUGS (5)
  1. CALCIUM [Concomitant]
     Active Substance: CALCIUM
     Indication: OSTEOPOROSIS
     Dosage: 1 DF, QD
     Route: 048
     Dates: start: 2012
  2. OMEPRAZOLE. [Concomitant]
     Active Substance: OMEPRAZOLE
     Indication: GASTRITIS
     Dosage: UNK UKN, UNK
     Route: 048
  3. VITAMIN D3 [Concomitant]
     Active Substance: CHOLECALCIFEROL
     Indication: OSTEOPOROSIS
     Dosage: 1 DF, WEEKLY
     Route: 048
     Dates: start: 2012
  4. ACLASTA [Suspect]
     Active Substance: ZOLEDRONIC ACID
     Indication: OSTEOPOROSIS
     Dosage: 5 MG/100 ML ONCE A YEAR
     Route: 042
     Dates: start: 20121105
  5. TYLEX                              /00116401/ [Concomitant]
     Active Substance: ACETAMINOPHEN\CODEINE PHOSPHATE
     Indication: PAIN
     Dosage: 1 DF, QD (SPORADIC USE)
     Route: 048
     Dates: start: 201411

REACTIONS (12)
  - Back pain [Recovered/Resolved]
  - Breast pain [Not Recovered/Not Resolved]
  - Chest pain [Recovered/Resolved]
  - Pyrexia [Recovering/Resolving]
  - Feeling cold [Not Recovered/Not Resolved]
  - Intestinal dilatation [Not Recovered/Not Resolved]
  - Respiratory rate decreased [Not Recovered/Not Resolved]
  - Intestinal polyp [Recovered/Resolved]
  - Headache [Not Recovered/Not Resolved]
  - Influenza like illness [Recovered/Resolved]
  - Pain [Recovering/Resolving]
  - Tinnitus [Not Recovered/Not Resolved]
